FAERS Safety Report 6850953-7 (Version None)
Quarter: 2010Q3

REPORT INFORMATION
  Report Type: 
  Country: None (occurrence: None)
  Receive Date: 20100716
  Receipt Date: 20071023
  Transmission Date: 20110219
  Serious: No
  Sender: FDA-Public Use
  Company Number: US-PFIZER INC-2007091092

PATIENT
  Sex: Female
  Weight: 56.818 kg

DRUGS (3)
  1. CHANTIX [Suspect]
     Indication: SMOKING CESSATION THERAPY
     Route: 048
     Dates: start: 20071014
  2. PERCOCET [Interacting]
     Indication: BACK PAIN
  3. ESTRADIOL [Concomitant]
     Route: 048

REACTIONS (7)
  - BACK PAIN [None]
  - DECREASED APPETITE [None]
  - DRUG INTERACTION [None]
  - DYSPNOEA [None]
  - FATIGUE [None]
  - HUNGER [None]
  - NAUSEA [None]
